FAERS Safety Report 9645352 (Version 1)
Quarter: 2013Q4

REPORT INFORMATION
  Report Type: Spontaneous
  Country: US (occurrence: None)
  Receive Date: 20131023
  Receipt Date: 20131023
  Transmission Date: 20140711
  Serious: Yes (Death, Hospitalization)
  Sender: FDA-Public Use
  Company Number: 2013US002679

PATIENT
  Age: 41 Year
  Sex: Female

DRUGS (6)
  1. ICLUSIG [Suspect]
     Indication: BLAST CRISIS IN MYELOGENOUS LEUKAEMIA
     Route: 048
     Dates: start: 20130218, end: 20131001
  2. FLUCONAZOLE (FLUCONAZOLE) [Concomitant]
  3. ACYCLOVIR (ACYCLOVIR) [Concomitant]
  4. CIPRO (CIPROFLOXACIN) [Concomitant]
  5. MORPHINE [Concomitant]
  6. OXYCODONE (OXYCODONE) [Concomitant]

REACTIONS (2)
  - Blast crisis in myelogenous leukaemia [None]
  - Malignant neoplasm progression [None]
